FAERS Safety Report 7822917-8 (Version None)
Quarter: 2011Q4

REPORT INFORMATION
  Report Type: 
  Country: None (occurrence: None)
  Receive Date: 20111018
  Receipt Date: 20100922
  Transmission Date: 20120403
  Serious: No
  Sender: FDA-Public Use
  Company Number: US-ASTRAZENECA-2009UW12986

PATIENT
  Age: 41 Year
  Sex: Male

DRUGS (2)
  1. NEXIUM [Suspect]
     Indication: GASTROOESOPHAGEAL REFLUX DISEASE
     Route: 048
     Dates: start: 20090512
  2. SYMBICORT [Suspect]
     Indication: COUGH
     Dosage: 160/4.5 UG, 2 PUFFS
     Route: 055
     Dates: start: 20090505

REACTIONS (5)
  - APHONIA [None]
  - DYSPHONIA [None]
  - DRUG DOSE OMISSION [None]
  - COUGH [None]
  - WEIGHT INCREASED [None]
